FAERS Safety Report 13228301 (Version 1)
Quarter: 2017Q1

REPORT INFORMATION
  Report Type: Spontaneous
  Country: US (occurrence: US)
  Receive Date: 20170213
  Receipt Date: 20170213
  Transmission Date: 20170428
  Serious: Yes (Other)
  Sender: FDA-Public Use
  Company Number: US-ROCHE-1853961

PATIENT
  Sex: Female
  Weight: 105.33 kg

DRUGS (11)
  1. DUONEB [Concomitant]
     Active Substance: ALBUTEROL SULFATE\IPRATROPIUM BROMIDE
  2. ALLEGRA [Concomitant]
     Active Substance: FEXOFENADINE HYDROCHLORIDE
     Indication: URTICARIA
     Route: 048
  3. EPINEPHRINE. [Concomitant]
     Active Substance: EPINEPHRINE
     Dosage: 0.2 CC OF EPINEPHRINE INTRAMUSCULARLY,
     Route: 030
     Dates: start: 20161031
  4. KARIVA [Concomitant]
     Active Substance: DESOGESTREL\ETHINYL ESTRADIOL
     Route: 065
  5. SINGULAIR [Concomitant]
     Active Substance: MONTELUKAST SODIUM
     Indication: URTICARIA
     Route: 065
  6. XOLAIR [Suspect]
     Active Substance: OMALIZUMAB
     Indication: URTICARIA
     Dosage: NO
     Route: 058
     Dates: start: 20161031, end: 20161031
  7. PREDNISONE. [Concomitant]
     Active Substance: PREDNISONE
     Dosage: 40MG OF PREDNISONE ORALLY
     Route: 048
     Dates: start: 20161031
  8. ZYRTEC [Concomitant]
     Active Substance: CETIRIZINE HYDROCHLORIDE
     Indication: URTICARIA
     Route: 048
     Dates: start: 20161031
  9. PROAIR HFA [Concomitant]
     Active Substance: ALBUTEROL SULFATE
     Indication: ASTHMA
     Dosage: 2 P PRN
     Route: 065
  10. FLONASE (UNITED STATES) [Concomitant]
     Indication: RHINITIS PERENNIAL
     Dosage: 2 SP
     Route: 065
  11. FLONASE (UNITED STATES) [Concomitant]
     Indication: SEASONAL ALLERGY

REACTIONS (1)
  - Hypersensitivity [Recovered/Resolved]

NARRATIVE: CASE EVENT DATE: 20161031
